FAERS Safety Report 23951278 (Version 1)
Quarter: 2024Q2

REPORT INFORMATION
  Report Type: Report from Study
  Country: IT (occurrence: IT)
  Receive Date: 20240607
  Receipt Date: 20240607
  Transmission Date: 20240716
  Serious: Yes (Death, Other)
  Sender: FDA-Public Use
  Company Number: IT-GLAXOSMITHKLINE-IT2024EME070498

PATIENT

DRUGS (1)
  1. NIRAPARIB [Suspect]
     Active Substance: NIRAPARIB
     Indication: Ovarian cancer stage III
     Dosage: 200 MG

REACTIONS (5)
  - Death [Fatal]
  - Cerebral ischaemia [Unknown]
  - Cerebrovascular accident [Unknown]
  - Myelodysplastic syndrome [Unknown]
  - Ovarian cancer recurrent [Unknown]
